FAERS Safety Report 9406467 (Version 1)
Quarter: 2013Q3

REPORT INFORMATION
  Report Type: Spontaneous
  Country: US (occurrence: US)
  Receive Date: 20130718
  Receipt Date: 20130718
  Transmission Date: 20140515
  Serious: No
  Sender: FDA-Public Use
  Company Number: US-009507513-1306USA012782

PATIENT
  Sex: Female

DRUGS (2)
  1. ASMANEX TWISTHALER [Suspect]
     Indication: ASTHMA
     Dosage: ONE PUFF TWICE A DAY, ORAL INHALATION
     Route: 055
     Dates: start: 20130104
  2. ASMANEX TWISTHALER [Suspect]
     Indication: DYSPNOEA
     Dosage: ONE PUFF TWICE A DAY, ORAL INHALATION
     Route: 055
     Dates: start: 20130104

REACTIONS (2)
  - Drug dose omission [Unknown]
  - Product quality issue [Unknown]
